FAERS Safety Report 11585192 (Version 5)
Quarter: 2016Q2

REPORT INFORMATION
  Report Type: Spontaneous
  Country: US (occurrence: US)
  Receive Date: 20151001
  Receipt Date: 20160527
  Transmission Date: 20160815
  Serious: Yes (Life-Threatening, Hospitalization, Other)
  Sender: FDA-Public Use
  Company Number: US-MDT-ADR-2015-01878

PATIENT
  Age: 28 Year
  Sex: Female

DRUGS (3)
  1. BACLOFEN. [Suspect]
     Active Substance: BACLOFEN
     Route: 037
     Dates: start: 20150922
  2. BACLOFEN. [Suspect]
     Active Substance: BACLOFEN
     Dosage: 1000.7MCG/DAY
     Route: 037
  3. BACLOFEN. [Suspect]
     Active Substance: BACLOFEN
     Route: 037

REACTIONS (3)
  - No therapeutic response [Unknown]
  - Pneumonia aspiration [Unknown]
  - Muscle spasticity [Unknown]

NARRATIVE: CASE EVENT DATE: 2015
